FAERS Safety Report 8622480-8 (Version None)
Quarter: 2012Q3

REPORT INFORMATION
  Report Type: 
  Country: None (occurrence: None)
  Receive Date: 20120827
  Receipt Date: 20120820
  Transmission Date: 20120928
  Serious: No
  Sender: FDA-Public Use
  Company Number: US-PFIZER INC-2012203734

PATIENT
  Age: 36 Year
  Sex: Female

DRUGS (1)
  1. SUTENT [Suspect]
     Dosage: 50 MG, TAKE 1 CAPSULE BY MOUTH ONE TIME A DAY FOR 4 WEEKS THEN 2 WEEKS OFF
     Route: 048
     Dates: start: 20120817

REACTIONS (2)
  - WEIGHT BEARING DIFFICULTY [None]
  - PAIN IN EXTREMITY [None]
